FAERS Safety Report 7842507-0 (Version None)
Quarter: 2011Q4

REPORT INFORMATION
  Report Type: 
  Country: None (occurrence: None)
  Receive Date: 20111025
  Receipt Date: 20111018
  Transmission Date: 20120403
  Serious: Yes (Life-Threatening, Hospitalization, Other)
  Sender: FDA-Public Use
  Company Number: PHFR2011GB04893

PATIENT
  Sex: Female
  Weight: 64.6 kg

DRUGS (15)
  1. LEVOTHYROXINE SODIUM [Concomitant]
     Indication: HYPERTHYROIDISM
     Dosage: 125 MG/ DAY
     Route: 048
  2. MICONAZOLE [Concomitant]
     Indication: SKIN INFECTION
     Route: 048
  3. FLOXACILLIN SODIUM [Concomitant]
     Indication: SKIN INFECTION
     Dosage: 500 MG, TID
  4. METFORMIN HCL [Concomitant]
     Indication: DIABETES MELLITUS
     Dosage: 1 G, BID
     Route: 048
  5. CHLORPHENIRAMINE MALEATE [Concomitant]
     Dosage: 4 MG/ DAY
     Route: 048
  6. SENNA [Concomitant]
     Indication: HYPERSENSITIVITY
     Dosage: 2 DF/ DAY
     Route: 048
  7. SOLIFENACIN SUCCINATE [Concomitant]
     Dosage: 5 MG/ DAY
     Route: 048
  8. CLOTRIMAZOLE [Concomitant]
     Indication: SKIN INFECTION
     Dosage: 1 %, TID
  9. CLOZARIL [Suspect]
     Indication: SCHIZOPHRENIA
     Route: 048
     Dates: start: 20100524, end: 20110817
  10. ADCAL-D3 [Concomitant]
     Indication: BLOOD CALCIUM DECREASED
     Dosage: TWICE DAILY
     Route: 048
  11. FYBOGEL [Concomitant]
     Indication: CONSTIPATION
     Route: 048
  12. OCCLUSAL [Concomitant]
     Indication: SKIN INFECTION
     Dosage: DAILY
     Route: 061
  13. LANSOPRAZOLE [Concomitant]
     Dosage: 30 MG/ DAY
     Route: 048
  14. DULOXETIME HYDROCHLORIDE [Concomitant]
     Indication: DEPRESSION
     Dosage: 60 MG/ DAY
     Route: 048
  15. ATORVASTATIN [Concomitant]
     Dosage: 10 MG/ DAY
     Route: 048

REACTIONS (7)
  - ORAL HERPES [None]
  - PYREXIA [None]
  - MALAISE [None]
  - NEUTROPHIL COUNT DECREASED [None]
  - WHITE BLOOD CELL COUNT DECREASED [None]
  - NEUTROPHIL COUNT INCREASED [None]
  - NEUTROPENIA [None]
